FAERS Safety Report 6143422-3 (Version None)
Quarter: 2009Q2

REPORT INFORMATION
  Report Type: 
  Country: None (occurrence: None)
  Receive Date: 20090403
  Receipt Date: 20090324
  Transmission Date: 20091009
  Serious: Yes (Other)
  Sender: FDA-Public Use
  Company Number: US-AVENTIS-200912464US

PATIENT
  Sex: Male

DRUGS (2)
  1. LOVENOX [Suspect]
     Dosage: DOSE: UNK
     Route: 058
     Dates: start: 20090320
  2. LOVENOX [Suspect]
     Dosage: DOSE: UNK
     Route: 058
     Dates: start: 20090301

REACTIONS (3)
  - CONTUSION [None]
  - SCRATCH [None]
  - THROMBOSIS [None]
